FAERS Safety Report 9354522 (Version 1)
Quarter: 2013Q2

REPORT INFORMATION
  Report Type: Spontaneous
  Country: FR (occurrence: FR)
  Receive Date: 20130618
  Receipt Date: 20130618
  Transmission Date: 20140414
  Serious: Yes (Other)
  Sender: FDA-Public Use
  Company Number: FR-ASTRAZENECA-2013SE41749

PATIENT
  Age: 75 Year
  Sex: Female

DRUGS (5)
  1. XEROQUEL [Suspect]
     Indication: BIPOLAR DISORDER
     Route: 048
     Dates: start: 20130410
  2. FOLIC ACID [Concomitant]
  3. IXPRIM [Concomitant]
  4. LEVOTHYROX [Concomitant]
  5. LOVENOX [Concomitant]

REACTIONS (1)
  - Anaemia [Unknown]
